FAERS Safety Report 19298744 (Version 1)
Quarter: 2021Q2

REPORT INFORMATION
  Report Type: Spontaneous
  Country: QA (occurrence: QA)
  Receive Date: 20210525
  Receipt Date: 20210525
  Transmission Date: 20210717
  Serious: Yes (Hospitalization)
  Sender: FDA-Public Use
  Company Number: QA-LUPIN PHARMACEUTICALS INC.-2021-07733

PATIENT
  Age: 52 Year
  Sex: Female

DRUGS (4)
  1. METOCLOPRAMIDE. [Suspect]
     Active Substance: METOCLOPRAMIDE
     Indication: PRODUCT USED FOR UNKNOWN INDICATION
     Dosage: UNK
     Route: 065
  2. DEXAMETHASONE. [Suspect]
     Active Substance: DEXAMETHASONE
     Indication: COVID-19 PNEUMONIA
     Dosage: UNK
     Route: 065
  3. FAVIPIRAVIR [Suspect]
     Active Substance: FAVIPIRAVIR
     Indication: COVID-19 PNEUMONIA
     Dosage: 1600 MILLIGRAM, BID (LOADING DOSE)
     Route: 065
  4. FAVIPIRAVIR [Suspect]
     Active Substance: FAVIPIRAVIR
     Dosage: 600 MILLIGRAM, BID (MAINTENANCE DOSE)
     Route: 065

REACTIONS (1)
  - Sinus bradycardia [Recovered/Resolved]
